FAERS Safety Report 12831119 (Version 2)
Quarter: 2017Q1

REPORT INFORMATION
  Report Type: Spontaneous
  Country: US (occurrence: US)
  Receive Date: 20161008
  Receipt Date: 20170330
  Transmission Date: 20170428
  Serious: No
  Sender: FDA-Public Use
  Company Number: PHEH2016US025895

PATIENT
  Sex: Male

DRUGS (2)
  1. AFINITOR [Suspect]
     Active Substance: EVEROLIMUS
     Indication: RENAL NEOPLASM
     Dosage: 5 MG, QD (ONCE DAILY)
     Route: 048
     Dates: start: 201606
  2. LENVATINIB [Suspect]
     Active Substance: LENVATINIB
     Indication: RENAL NEOPLASM
     Dosage: 14 MG, QD (ONCE DAILY)
     Route: 048
     Dates: start: 201606

REACTIONS (3)
  - Vomiting [Recovered/Resolved]
  - Mouth swelling [Recovered/Resolved]
  - Diarrhoea [Recovered/Resolved]
